FAERS Safety Report 10460229 (Version 2)
Quarter: 2014Q3

REPORT INFORMATION
  Report Type: Report from Study
  Country: US (occurrence: US)
  Receive Date: 20140917
  Receipt Date: 20140917
  Transmission Date: 20150326
  Serious: Yes (Hospitalization, Other)
  Sender: FDA-Public Use
  Company Number: US-BAXTER-2014BAX049836

PATIENT
  Sex: Female

DRUGS (4)
  1. GAMMAGARD LIQUID [Suspect]
     Active Substance: HUMAN IMMUNOGLOBULIN G
     Indication: IMMUNODEFICIENCY
     Route: 042
     Dates: start: 2010
  2. GAMMAGARD LIQUID [Suspect]
     Active Substance: HUMAN IMMUNOGLOBULIN G
     Dosage: SECOND GAMMAGARD INFUSION
     Route: 042
     Dates: start: 2010, end: 2011
  3. GAMMAGARD LIQUID [Suspect]
     Active Substance: HUMAN IMMUNOGLOBULIN G
     Dosage: LOWER UNKNOWN DOSE
     Route: 042
     Dates: start: 2012
  4. HIZENTRA [Concomitant]
     Active Substance: HUMAN IMMUNOGLOBULIN G
     Indication: IMMUNODEFICIENCY
     Route: 058
     Dates: start: 2011, end: 2012

REACTIONS (4)
  - Meningitis [Recovered/Resolved]
  - Swelling face [Recovered/Resolved]
  - Sinusitis [Recovering/Resolving]
  - Local swelling [Recovered/Resolved]

NARRATIVE: CASE EVENT DATE: 2010
